FAERS Safety Report 4640314-3 (Version None)
Quarter: 2005Q2

REPORT INFORMATION
  Report Type: 
  Country: None (occurrence: None)
  Receive Date: 20050420
  Receipt Date: 20041001
  Transmission Date: 20051028
  Serious: No
  Sender: FDA-Public Use
  Company Number: US-GLAXOSMITHKLINE-A0528127A

PATIENT
  Sex: Female

DRUGS (1)
  1. ESKALITH [Suspect]
     Dosage: 450MG PER DAY
     Route: 048

REACTIONS (2)
  - TINNITUS [None]
  - TREMOR [None]
